FAERS Safety Report 5737915-8 (Version None)
Quarter: 2008Q2

REPORT INFORMATION
  Report Type: 
  Country: None (occurrence: None)
  Receive Date: 20080512
  Receipt Date: 20080512
  Transmission Date: 20081010
  Serious: No
  Sender: FDA-Public Use
  Company Number: None

PATIENT

DRUGS (1)
  1. RECLAST [Suspect]

REACTIONS (10)
  - CHILLS [None]
  - FAECAL INCONTINENCE [None]
  - FEELING ABNORMAL [None]
  - FEELING COLD [None]
  - FOOD AVERSION [None]
  - HEADACHE [None]
  - HYPERHIDROSIS [None]
  - NAUSEA [None]
  - URINARY INCONTINENCE [None]
  - VOMITING PROJECTILE [None]
